FAERS Safety Report 7678146-4 (Version None)
Quarter: 2011Q3

REPORT INFORMATION
  Report Type: 
  Country: None (occurrence: None)
  Receive Date: 20110811
  Receipt Date: 20101112
  Transmission Date: 20111222
  Serious: Yes (Life-Threatening)
  Sender: FDA-Public Use
  Company Number: US-MUTUAL PHARMACEUTICAL COMPANY, INC.-2010P1002365

PATIENT
  Sex: 0

DRUGS (1)
  1. DOXYCYCLINE HYCLATE [Suspect]
     Indication: LYME DISEASE
     Route: 048
     Dates: start: 20101102, end: 20101102

REACTIONS (2)
  - ANAPHYLACTIC REACTION [None]
  - EYE SWELLING [None]
